FAERS Safety Report 4482363-4 (Version None)
Quarter: 2004Q4

REPORT INFORMATION
  Report Type: 
  Country: None (occurrence: None)
  Receive Date: 20041022
  Receipt Date: 20041011
  Transmission Date: 20050328
  Serious: Yes (Life-Threatening, Hospitalization)
  Sender: FDA-Public Use
  Company Number: US-MERCK-0410USA01539

PATIENT
  Age: 38 Year
  Sex: Male

DRUGS (1)
  1. VIOXX [Suspect]
     Indication: MONARTHRITIS
     Route: 048
     Dates: start: 20020101, end: 20040501

REACTIONS (3)
  - CHEST PAIN [None]
  - DYSPNOEA [None]
  - OEDEMA PERIPHERAL [None]
